FAERS Safety Report 23166679 (Version 2)
Quarter: 2023Q4

REPORT INFORMATION
  Report Type: Spontaneous
  Country: SE (occurrence: SE)
  Receive Date: 20231109
  Receipt Date: 20231201
  Transmission Date: 20240109
  Serious: Yes (Life-Threatening, Hospitalization, Other)
  Sender: FDA-Public Use
  Company Number: SE-PFIZER INC-202300348031

PATIENT
  Age: 76 Year
  Sex: Male

DRUGS (6)
  1. LENALIDOMIDE [Suspect]
     Active Substance: LENALIDOMIDE
     Indication: Immunosuppressant drug therapy
     Dosage: Q3W (3 WEEKS WITH A 1-WEEK PAUSE)
     Route: 065
     Dates: start: 202111
  2. LENALIDOMIDE [Suspect]
     Active Substance: LENALIDOMIDE
     Indication: Follicular lymphoma stage II
  3. EPCORITAMAB [Suspect]
     Active Substance: EPCORITAMAB
     Indication: Immunosuppressant drug therapy
     Dosage: MONTHLY (ONCE A MONTH)
     Route: 065
     Dates: start: 202111
  4. EPCORITAMAB [Suspect]
     Active Substance: EPCORITAMAB
     Indication: Follicular lymphoma stage II
  5. RITUXIMAB [Suspect]
     Active Substance: RITUXIMAB
     Indication: Immunosuppressant drug therapy
     Dosage: MONTHLY (ONCE A MONTH)
     Route: 065
     Dates: start: 202111
  6. RITUXIMAB [Suspect]
     Active Substance: RITUXIMAB
     Indication: Follicular lymphoma stage II

REACTIONS (2)
  - COVID-19 [Recovered/Resolved]
  - Off label use [Unknown]
